FAERS Safety Report 14937267 (Version 3)
Quarter: 2018Q3

REPORT INFORMATION
  Report Type: Report from Study
  Country: US (occurrence: US)
  Receive Date: 20180525
  Receipt Date: 20180919
  Transmission Date: 20181010
  Serious: Yes (Hospitalization)
  Sender: FDA-Public Use
  Company Number: US-ROCHE-2119155

PATIENT
  Age: 74 Year
  Sex: Female
  Weight: 85.8 kg

DRUGS (13)
  1. ETOPOSIDE. [Suspect]
     Active Substance: ETOPOSIDE
     Indication: SMALL CELL LUNG CANCER
     Dosage: MOST RECENT DOSE : 15/FEB/2018 (197 MG)
     Route: 042
     Dates: start: 20171213
  2. AMLODIPINE [Concomitant]
     Active Substance: AMLODIPINE BESYLATE
     Route: 048
     Dates: start: 20171020
  3. BLINDED TRILACICLIB [Suspect]
     Active Substance: TRILACICLIB
     Indication: SMALL CELL LUNG CANCER
     Dosage: MOST RECENT DOSE : 15/FEB/2018
     Route: 042
     Dates: start: 20171213
  4. CARBOPLATIN. [Suspect]
     Active Substance: CARBOPLATIN
     Indication: SMALL CELL LUNG CANCER
     Dosage: AUC = 5 MILLIGRAMS PER MILLILITER PER MINUTE (MG/ML/MIN)?MOST RECENT DOSE: 13/FEB/2018 434 MG
     Route: 042
     Dates: start: 20171213
  5. LORAZEPAM. [Concomitant]
     Active Substance: LORAZEPAM
     Route: 048
     Dates: start: 20171207
  6. GLUCOTROL [Concomitant]
     Active Substance: GLIPIZIDE
     Route: 048
     Dates: start: 20171110
  7. METOPROLOL. [Concomitant]
     Active Substance: METOPROLOL
     Route: 048
     Dates: start: 2011
  8. EFFEXOR [Concomitant]
     Active Substance: VENLAFAXINE HYDROCHLORIDE
     Route: 048
     Dates: start: 2012
  9. ATEZOLIZUMAB. [Suspect]
     Active Substance: ATEZOLIZUMAB
     Indication: SMALL CELL LUNG CANCER
     Dosage: 12:50, MOST RECENT DOSE: 24/APR/2018?MOST RECENT DOSE ON 26/JUN/2018
     Route: 042
     Dates: start: 20171213
  10. GLIPIZIDE. [Concomitant]
     Active Substance: GLIPIZIDE
     Route: 048
     Dates: start: 1997
  11. PROTONIX (OMEPRAZOLE) [Concomitant]
     Active Substance: OMEPRAZOLE
     Route: 048
     Dates: start: 20171208
  12. ZOCOR [Concomitant]
     Active Substance: SIMVASTATIN
     Route: 048
     Dates: start: 2014
  13. TOUJEO [Concomitant]
     Active Substance: INSULIN GLARGINE
     Dosage: 1 OTHER
     Route: 058
     Dates: start: 20171215

REACTIONS (2)
  - Hyponatraemia [Recovered/Resolved]
  - Inappropriate antidiuretic hormone secretion [Recovered/Resolved]

NARRATIVE: CASE EVENT DATE: 20180430
